FAERS Safety Report 18522770 (Version 9)
Quarter: 2021Q4

REPORT INFORMATION
  Report Type: Report from Study
  Country: US (occurrence: US)
  Receive Date: 20201119
  Receipt Date: 20211109
  Transmission Date: 20220303
  Serious: Yes (Other)
  Sender: FDA-Public Use
  Company Number: US-NOVARTISPH-NVSC2020US308999

PATIENT
  Age: 39 Year
  Sex: Female

DRUGS (1)
  1. KESIMPTA [Suspect]
     Active Substance: OFATUMUMAB
     Indication: Product used for unknown indication
     Dosage: 20 MG
     Route: 058
     Dates: start: 20210708

REACTIONS (4)
  - Hallucination [Unknown]
  - Urinary tract infection [Unknown]
  - Lower respiratory tract congestion [Unknown]
  - Product storage error [Unknown]

NARRATIVE: CASE EVENT DATE: 20210708
